FAERS Safety Report 18325330 (Version 1)
Quarter: 2020Q3

REPORT INFORMATION
  Report Type: Report from Study
  Country: US (occurrence: US)
  Receive Date: 20200929
  Receipt Date: 20200929
  Transmission Date: 20201103
  Serious: Yes (Other)
  Sender: FDA-Public Use
  Company Number: US-JNJFOC-20190327718

PATIENT
  Age: 60 Year
  Sex: Male
  Weight: 92.9 kg

DRUGS (1)
  1. DARATUMUMAB [Suspect]
     Active Substance: DARATUMUMAB
     Indication: PROSTATE CANCER
     Route: 042
     Dates: start: 20190318

REACTIONS (3)
  - Infusion related reaction [Recovered/Resolved]
  - Dysphagia [Recovered/Resolved]
  - Rash maculo-papular [Recovered/Resolved]

NARRATIVE: CASE EVENT DATE: 20190318
